FAERS Safety Report 19681871 (Version 1)
Quarter: 2021Q3

REPORT INFORMATION
  Report Type: Spontaneous
  Country: FR (occurrence: FR)
  Receive Date: 20210810
  Receipt Date: 20210810
  Transmission Date: 20211014
  Serious: Yes (Death, Other)
  Sender: FDA-Public Use
  Company Number: FR-SA-2021SA261452

PATIENT

DRUGS (5)
  1. PERTUZUMAB. [Suspect]
     Active Substance: PERTUZUMAB
     Indication: HER2 MUTANT NON-SMALL CELL LUNG CANCER
     Dosage: 840 MG, Q3W, LOADING DOSE
  2. DOCETAXEL. [Suspect]
     Active Substance: DOCETAXEL
     Indication: HER2 MUTANT NON-SMALL CELL LUNG CANCER
     Dosage: 75 MG/M2, Q3W
  3. PERTUZUMAB. [Suspect]
     Active Substance: PERTUZUMAB
     Dosage: 420 MG, Q3W
  4. TRASTUZUMAB. [Suspect]
     Active Substance: TRASTUZUMAB
     Indication: HER2 MUTANT NON-SMALL CELL LUNG CANCER
     Dosage: 8 MG/KG, Q3W, LOADING DOSE
  5. TRASTUZUMAB. [Suspect]
     Active Substance: TRASTUZUMAB
     Dosage: 6 MG/KG, Q3W

REACTIONS (1)
  - Sudden death [Fatal]
